FAERS Safety Report 12239391 (Version 2)
Quarter: 2016Q2

REPORT INFORMATION
  Report Type: Spontaneous
  Country: US (occurrence: US)
  Receive Date: 20160405
  Receipt Date: 20160412
  Transmission Date: 20160815
  Serious: Yes (Other)
  Sender: FDA-Public Use
  Company Number: US-PFIZER INC-2016172750

PATIENT
  Age: 65 Year
  Sex: Male
  Weight: 84 kg

DRUGS (17)
  1. SODIUM BICARBONATE. [Concomitant]
     Active Substance: SODIUM BICARBONATE
     Dosage: 1300 MG, 2X/DAY (650 MG TABLET, TAKE 2 TABLET )
     Route: 048
  2. HYDRALAZINE [Concomitant]
     Active Substance: HYDRALAZINE HYDROCHLORIDE
     Dosage: 25 MG, 3X/DAY (50 MG TABLET, TAKE1/2 TABLET)
     Route: 048
     Dates: start: 20160120
  3. TORSEMIDE. [Concomitant]
     Active Substance: TORSEMIDE
     Dosage: 40 MG, 2X/DAY (20 MG TABLET, TAKE 2 TABLET )
     Route: 048
  4. PERCOCET [Concomitant]
     Active Substance: ACETAMINOPHEN\OXYCODONE HYDROCHLORIDE
     Dosage: 1 DF, AS NEEDED (OXYCODONE 10MG-ACETAMINOPHEN 325MG, 1 TABLET THREE TIMES A DAY)
     Route: 048
     Dates: start: 20150914
  5. NOVOLIN N [Concomitant]
     Active Substance: INSULIN HUMAN
     Indication: DIABETES MELLITUS
     Dosage: UNK, DAILY (100 UNIT/ML SUSPENSION, INJECT 30 QAM AND 15QPM)
     Dates: start: 20160112
  6. MAGNESIUM OXIDE. [Concomitant]
     Active Substance: MAGNESIUM OXIDE
     Dosage: 400 MG, 1X/DAY
     Route: 048
  7. DOCUSATE SODIUM. [Concomitant]
     Active Substance: DOCUSATE SODIUM
     Dosage: 100 MG, AS NEEDED
  8. DIAZEPAM. [Concomitant]
     Active Substance: DIAZEPAM
     Dosage: 10 MG, AS NEEDED (EVERY EIGHT HOURS)
     Route: 048
  9. CALCIUM 600 + D3 PLUS MINERALS [Concomitant]
     Dosage: 1 DF, 2X/DAY
     Route: 048
  10. RAPAMUNE [Suspect]
     Active Substance: SIROLIMUS
     Dosage: 8 MG, 1X/DAY (1 MG TABLET, TAKE 8 TABLET)
     Route: 048
  11. PREDNISONE. [Concomitant]
     Active Substance: PREDNISONE
     Dosage: 5 MG, 1X/DAY
     Route: 048
  12. AMLODIPINE [Concomitant]
     Active Substance: AMLODIPINE BESYLATE
     Dosage: 10 MG, 1X/DAY
     Route: 048
  13. REGLAN [Concomitant]
     Active Substance: METOCLOPRAMIDE HYDROCHLORIDE
     Dosage: 5 MG, 3X/DAY (10 MG TABLET, TAKE ?)
     Route: 048
  14. OMEPRAZOLE. [Concomitant]
     Active Substance: OMEPRAZOLE
     Dosage: 20 MG, 2X/DAY
     Route: 048
     Dates: start: 20160112
  15. COZAAR [Concomitant]
     Active Substance: LOSARTAN POTASSIUM
     Dosage: 100 MG, 1X/DAY
  16. AMMONIUM LACTATE. [Concomitant]
     Active Substance: AMMONIUM LACTATE
     Indication: DRY SKIN
     Dosage: 12 %, 2X/DAY
     Dates: start: 20151029
  17. CELEXA [Concomitant]
     Active Substance: CITALOPRAM HYDROBROMIDE
     Dosage: 10 MG, 1X/DAY
     Route: 048

REACTIONS (10)
  - Coxsackie viral infection [Unknown]
  - Pain in extremity [Unknown]
  - Off label use [Unknown]
  - Fall [Unknown]
  - Multiple fractures [Unknown]
  - Rash [Unknown]
  - Dizziness [Unknown]
  - Oedema peripheral [Recovering/Resolving]
  - Pyrexia [Recovered/Resolved]
  - Weight decreased [Unknown]
